FAERS Safety Report 25177510 (Version 1)
Quarter: 2025Q2

REPORT INFORMATION
  Report Type: Spontaneous
  Country: CN (occurrence: CN)
  Receive Date: 20250409
  Receipt Date: 20250409
  Transmission Date: 20250717
  Serious: Yes (Hospitalization, Disabling)
  Sender: ACCORD
  Company Number: CN-MLMSERVICE-20250325-PI449723-00077-1

PATIENT
  Age: 52 Year
  Sex: Female
  Weight: 48 kg

DRUGS (1)
  1. CAPECITABINE [Suspect]
     Active Substance: CAPECITABINE
     Indication: Invasive ductal breast carcinoma
     Route: 048
     Dates: start: 20210917, end: 20220319

REACTIONS (4)
  - Jugular vein thrombosis [Recovered/Resolved]
  - Decreased appetite [Unknown]
  - Fatigue [Unknown]
  - Asthenia [Unknown]

NARRATIVE: CASE EVENT DATE: 20220312
